FAERS Safety Report 9876027 (Version 2)
Quarter: 2014Q1

REPORT INFORMATION
  Report Type: Other
  Country: US (occurrence: US)
  Receive Date: 20140206
  Receipt Date: 20140206
  Transmission Date: 20141002
  Serious: No
  Sender: FDA-Public Use
  Company Number: US-ACORDA-ACO_35765_2013

PATIENT
  Sex: Male

DRUGS (5)
  1. AMPYRA [Suspect]
     Indication: GAIT DISTURBANCE
     Dosage: 10 MG, BID
     Route: 048
     Dates: start: 2012
  2. TIZANIDINE [Concomitant]
     Indication: MUSCLE SPASTICITY
     Dosage: 2 MG, QID
     Route: 048
     Dates: start: 2012
  3. BACLOFEN [Concomitant]
     Indication: MUSCLE SPASTICITY
     Dosage: 20 MG, TID
     Route: 048
     Dates: start: 2011
  4. BUPROPION [Concomitant]
     Indication: DEPRESSION
     Dosage: 300 MG, QD
     Route: 048
     Dates: start: 2011
  5. CELEBREX [Concomitant]
     Indication: PAIN
     Dosage: 100 MG, PRN QD
     Route: 048
     Dates: start: 2011

REACTIONS (1)
  - Constipation [Unknown]
